FAERS Safety Report 15985942 (Version 3)
Quarter: 2019Q2

REPORT INFORMATION
  Report Type: Report from Study
  Country: US (occurrence: US)
  Receive Date: 20190220
  Receipt Date: 20190619
  Transmission Date: 20190711
  Serious: Yes (Hospitalization, Other)
  Sender: FDA-Public Use
  Company Number: US-BAYER-2019-036028

PATIENT
  Age: 41 Year
  Sex: Female

DRUGS (1)
  1. BETASERON [Suspect]
     Active Substance: INTERFERON BETA-1B
     Indication: MULTIPLE SCLEROSIS
     Dosage: 0.3 MG, QOD
     Route: 058
     Dates: start: 20150303

REACTIONS (7)
  - Fatigue [None]
  - Fall [None]
  - Maternal exposure during pregnancy [None]
  - Feeling cold [None]
  - Hospitalisation [None]
  - Mobility decreased [None]
  - Fall [None]

NARRATIVE: CASE EVENT DATE: 20190609
